FAERS Safety Report 9200560 (Version 1)
Quarter: 2013Q1

REPORT INFORMATION
  Report Type: Spontaneous
  Country: US (occurrence: US)
  Receive Date: 20130329
  Receipt Date: 20130329
  Transmission Date: 20140127
  Serious: Yes (Disabling, Other)
  Sender: FDA-Public Use
  Company Number: US-PFIZER INC-2006129830

PATIENT
  Age: 62 Year
  Sex: Female
  Weight: 70.8 kg

DRUGS (6)
  1. MOTRIN [Suspect]
     Indication: PAIN
     Dosage: 800 MG QID
     Route: 048
  2. MOTRIN [Suspect]
     Indication: ARTHRITIS
  3. PROPACET [Concomitant]
     Indication: PAIN
     Dosage: UNSPECIFIED
     Route: 065
  4. LISINOPRIL [Concomitant]
     Dosage: UNK
     Route: 065
  5. ISOSORBIDE [Concomitant]
     Indication: CARDIAC DISORDER
     Dosage: UNSPECIFIED
     Route: 065
  6. METFORMIN HCL [Concomitant]
     Indication: DIABETES MELLITUS
     Dosage: UNSPECIFIED
     Route: 065

REACTIONS (6)
  - Neuropathy peripheral [Not Recovered/Not Resolved]
  - Hysterectomy [Not Recovered/Not Resolved]
  - Sensation of pressure [Not Recovered/Not Resolved]
  - Gastrointestinal disorder [Not Recovered/Not Resolved]
  - Blood cholesterol increased [Not Recovered/Not Resolved]
  - Blood pressure increased [Not Recovered/Not Resolved]
